FAERS Safety Report 9731275 (Version 1)
Quarter: 2013Q4

REPORT INFORMATION
  Report Type: Spontaneous
  Country: CA (occurrence: CA)
  Receive Date: 20131203
  Receipt Date: 20131203
  Transmission Date: 20140711
  Serious: Yes (Hospitalization)
  Sender: FDA-Public Use
  Company Number: CA-GILEAD-2013-0088860

PATIENT
  Age: 55 Year
  Sex: Female

DRUGS (10)
  1. AMBRISENTAN [Suspect]
     Indication: PULMONARY ARTERIAL HYPERTENSION
     Dosage: 10000NG PER DAY
     Route: 048
     Dates: start: 20111107
  2. WARFARIN [Concomitant]
  3. FUROSEMIDE [Concomitant]
  4. POTASSIUM [Concomitant]
  5. PREDNISONE [Concomitant]
  6. ASA [Concomitant]
  7. REVATIO [Concomitant]
  8. SPIRONOLACTONE [Concomitant]
  9. AMLODIPINE [Concomitant]
  10. RABEPRAZOLE [Concomitant]

REACTIONS (1)
  - Mouth haemorrhage [Not Recovered/Not Resolved]
